FAERS Safety Report 10748281 (Version 1)
Quarter: 2015Q1

REPORT INFORMATION
  Report Type: Report from Study
  Country: FR (occurrence: None)
  Receive Date: 20150127
  Receipt Date: 20150127
  Transmission Date: 20150721
  Serious: Yes (Hospitalization)
  Sender: FDA-Public Use
  Company Number: Z0015151D

PATIENT
  Age: 48 Year
  Weight: 85 kg

DRUGS (4)
  1. DOLUTEGRAVIR (DOLUTEGRAVIR) TABLET [Concomitant]
     Active Substance: DOLUTEGRAVIR
     Route: 048
     Dates: start: 20110802
  2. LEVOTHYROX (LEVOTHYROXINE SODIUM) [Concomitant]
     Active Substance: LEVOTHYROXINE SODIUM
  3. KIVEXA (ABACAVIR, LAMIVUDINE) [Concomitant]
  4. DOLUTEGRAVIR (DOLUTEGRAVIR) TABLET [Suspect]
     Active Substance: DOLUTEGRAVIR
     Indication: HIV INFECTION
     Route: 048
     Dates: start: 20090925, end: 20110801

REACTIONS (2)
  - Constipation [None]
  - Abdominal distension [None]

NARRATIVE: CASE EVENT DATE: 201012
